FAERS Safety Report 22157859 (Version 1)
Quarter: 2023Q1

REPORT INFORMATION
  Report Type: Spontaneous
  Country: US (occurrence: US)
  Receive Date: 20230330
  Receipt Date: 20230330
  Transmission Date: 20230417
  Serious: Yes (Other)
  Sender: FDA-Public Use
  Company Number: US-APIL-2309725US

PATIENT
  Sex: Male

DRUGS (1)
  1. REFRESH TEARS [Suspect]
     Active Substance: CARBOXYMETHYLCELLULOSE SODIUM
     Indication: Product used for unknown indication

REACTIONS (4)
  - Blindness [Unknown]
  - Eye disorder [Unknown]
  - Herpes zoster [Unknown]
  - Retinal disorder [Unknown]
